FAERS Safety Report 6215475-5 (Version None)
Quarter: 2009Q2

REPORT INFORMATION
  Report Type: 
  Country: None (occurrence: None)
  Receive Date: 20090603
  Receipt Date: 20090525
  Transmission Date: 20091009
  Serious: Yes (Hospitalization)
  Sender: FDA-Public Use
  Company Number: GXKR2009JP06153

PATIENT
  Age: 74 Year
  Sex: Male

DRUGS (4)
  1. CARBOPLATIN [Suspect]
     Indication: LUNG NEOPLASM MALIGNANT
     Dosage: AUC5=500 MG, DAY 1,
  2. PACLITAXEL [Suspect]
     Indication: LUNG NEOPLASM MALIGNANT
     Dosage: 70 MG/M2 (110 MG/DAY) ON DAYS 1,8 AND 15,
  3. GRANISETRON  HCL [Concomitant]
  4. CHLORPHENIRAMINE MALEATE [Concomitant]

REACTIONS (6)
  - BLOOD PRESSURE DECREASED [None]
  - DEHYDRATION [None]
  - HEART RATE INCREASED [None]
  - RECTAL PERFORATION [None]
  - SEPSIS [None]
  - WHITE BLOOD CELL COUNT DECREASED [None]
